FAERS Safety Report 5761644-8 (Version None)
Quarter: 2008Q2

REPORT INFORMATION
  Report Type: 
  Country: None (occurrence: None)
  Receive Date: 20080606
  Receipt Date: 20070528
  Transmission Date: 20081010
  Serious: Yes (Other)
  Sender: FDA-Public Use
  Company Number: HK-ABBOTT-08P-075-0455493-00

PATIENT
  Age: 30 Year
  Sex: Female

DRUGS (1)
  1. REDUCTIL 10MG [Suspect]
     Indication: OBESITY
     Route: 048
     Dates: start: 20061201, end: 20070417

REACTIONS (1)
  - ABORTION INDUCED [None]
